FAERS Safety Report 12081390 (Version 2)
Quarter: 2016Q2

REPORT INFORMATION
  Report Type: Spontaneous
  Country: US (occurrence: US)
  Receive Date: 20160216
  Receipt Date: 20160427
  Transmission Date: 20160815
  Serious: No
  Sender: FDA-Public Use
  Company Number: US-009507513-1602USA007648

PATIENT
  Age: 22 Year
  Sex: Female
  Weight: 77.98 kg

DRUGS (1)
  1. NEXPLANON [Suspect]
     Active Substance: ETONOGESTREL
     Indication: CONTRACEPTION
     Dosage: 1 DF, 1 ROD/3 YEARS, SUBDERMAL LEFT
     Route: 059
     Dates: start: 20131220

REACTIONS (2)
  - Amenorrhoea [Recovered/Resolved]
  - Menometrorrhagia [Not Recovered/Not Resolved]

NARRATIVE: CASE EVENT DATE: 20131220
